FAERS Safety Report 17162720 (Version 1)
Quarter: 2019Q4

REPORT INFORMATION
  Report Type: Report from Study
  Country: CO (occurrence: CO)
  Receive Date: 20191217
  Receipt Date: 20191217
  Transmission Date: 20200122
  Serious: Yes (Other)
  Sender: FDA-Public Use
  Company Number: CO-ROCHE-2420460

PATIENT
  Sex: Female

DRUGS (1)
  1. CAPECITABINE. [Suspect]
     Active Substance: CAPECITABINE
     Indication: PRODUCT USED FOR UNKNOWN INDICATION
     Route: 048

REACTIONS (14)
  - Pain [Unknown]
  - Dysstasia [Unknown]
  - Parkinson^s disease [Unknown]
  - Fatigue [Unknown]
  - Abdominal discomfort [Unknown]
  - Abdominal distension [Unknown]
  - Burning sensation [Unknown]
  - Vertigo [Unknown]
  - Liver injury [Unknown]
  - General physical health deterioration [Unknown]
  - Treatment noncompliance [Unknown]
  - Tremor [Unknown]
  - Headache [Unknown]
  - Malaise [Unknown]
